FAERS Safety Report 8161701-5 (Version None)
Quarter: 2012Q1

REPORT INFORMATION
  Report Type: 
  Country: None (occurrence: None)
  Receive Date: 20120224
  Receipt Date: 20110110
  Transmission Date: 20120608
  Serious: Yes (Other)
  Sender: FDA-Public Use
  Company Number: US-BRISTOL-MYERS SQUIBB COMPANY-15477920

PATIENT
  Age: 69 Year
  Sex: Female

DRUGS (1)
  1. GLUCOPHAGE [Suspect]

REACTIONS (1)
  - BLOOD GLUCOSE DECREASED [None]
